FAERS Safety Report 18721352 (Version 6)
Quarter: 2021Q1

REPORT INFORMATION
  Report Type: Report from Study
  Country: US (occurrence: US)
  Receive Date: 20210109
  Receipt Date: 20210227
  Transmission Date: 20210419
  Serious: Yes (Hospitalization, Other)
  Sender: FDA-Public Use
  Company Number: NVSC2020US341077

PATIENT
  Age: 58 Year
  Sex: Female
  Weight: 70.3 kg

DRUGS (3)
  1. TADALAFIL. [Concomitant]
     Active Substance: TADALAFIL
     Indication: PRODUCT USED FOR UNKNOWN INDICATION
     Dosage: UNK
     Route: 065
  2. TREPROSTINIL. [Suspect]
     Active Substance: TREPROSTINIL
     Indication: PULMONARY ARTERIAL HYPERTENSION
     Dosage: UNK (40 NG/KG/MIN (CONTINUOUS)(STRENGHT: 5MG/ML))
     Route: 042
     Dates: start: 20200716
  3. TREPROSTINIL. [Suspect]
     Active Substance: TREPROSTINIL
     Dosage: UNK(40 NG/KG/MIN (CONTINUOUS)(STRENGHT: 2.5MG/ML))
     Route: 042
     Dates: start: 20200716

REACTIONS (10)
  - Dehydration [Unknown]
  - Arthralgia [Unknown]
  - Muscle spasms [Unknown]
  - Back pain [Unknown]
  - Weight increased [Unknown]
  - Pyrexia [Unknown]
  - Staphylococcal infection [Unknown]
  - Sciatica [Unknown]
  - Vascular device infection [Unknown]
  - Neuralgia [Not Recovered/Not Resolved]

NARRATIVE: CASE EVENT DATE: 20210201
